FAERS Safety Report 8012707-8 (Version None)
Quarter: 2011Q4

REPORT INFORMATION
  Report Type: 
  Country: None (occurrence: None)
  Receive Date: 20111229
  Receipt Date: 20111220
  Transmission Date: 20120403
  Serious: Yes (Hospitalization)
  Sender: FDA-Public Use
  Company Number: JP-AMGEN-JPNSP2011055006

PATIENT
  Age: 61 Year
  Sex: Female

DRUGS (12)
  1. ANABOLIC STEROIDS [Concomitant]
     Route: 065
  2. PROMACTA [Concomitant]
     Route: 048
     Dates: start: 20111103
  3. ROMIPLATE [Suspect]
     Route: 058
     Dates: start: 20111206
  4. ANABOLIC STEROIDS [Concomitant]
     Route: 065
  5. ROMIPLATE [Suspect]
     Indication: IDIOPATHIC THROMBOCYTOPENIC PURPURA
     Dosage: 3 MUG/KG, UNK
     Route: 058
     Dates: start: 20110815, end: 20111019
  6. ROMIPLATE [Suspect]
     Route: 058
  7. ROMIPLATE [Suspect]
     Route: 058
     Dates: start: 20111213
  8. PROMACTA [Concomitant]
     Route: 048
     Dates: start: 20111108
  9. ROMIPLATE [Suspect]
     Route: 058
     Dates: start: 20111220
  10. ROMIPLATE [Suspect]
     Route: 058
     Dates: start: 20110815
  11. ROMIPLATE [Suspect]
     Route: 058
     Dates: start: 20111012, end: 20111019
  12. ANABOLIC STEROIDS [Concomitant]
     Dosage: 25 MG, UNK
     Route: 065

REACTIONS (3)
  - HEPATIC FUNCTION ABNORMAL [None]
  - THROMBOCYTOPENIA [None]
  - RENAL IMPAIRMENT [None]
